FAERS Safety Report 22788746 (Version 13)
Quarter: 2024Q3

REPORT INFORMATION
  Report Type: Spontaneous
  Country: CA (occurrence: CA)
  Receive Date: 20230804
  Receipt Date: 20240819
  Transmission Date: 20241017
  Serious: Yes (Other)
  Sender: PFIZER
  Company Number: CA-PFIZER INC-PV202200078541

PATIENT
  Age: 58 Year
  Sex: Male
  Weight: 82.8 kg

DRUGS (16)
  1. INLYTA [Suspect]
     Active Substance: AXITINIB
     Indication: Renal cell carcinoma
     Dosage: 5 MG, 2X/DAY (FOR 21 DAYS)
     Route: 048
     Dates: start: 20220826
  2. INLYTA [Suspect]
     Active Substance: AXITINIB
     Dosage: 7 MG, 2X/DAY (TAKE 2 TAB (1MG) WITH 1 TAB (5MG))
     Route: 048
  3. INLYTA [Suspect]
     Active Substance: AXITINIB
     Dosage: 7 MG, 2X/DAY (TAKE 2 TAB (1MG) WITH 1 TAB (5MG))
     Route: 048
  4. INLYTA [Suspect]
     Active Substance: AXITINIB
     Dosage: 7 MG, 2X/DAY (TAKE 2 TAB (1MG) WITH 1 TAB (5MG))
     Route: 048
  5. INLYTA [Suspect]
     Active Substance: AXITINIB
     Dosage: 7 MG, 2X/DAY (TAKE 2 TABS OF 1MG 1 TAB OF 5MG X 21 DAYS)
     Route: 048
     Dates: start: 20230112
  6. INLYTA [Suspect]
     Active Substance: AXITINIB
     Dosage: 4 MG, 2X/DAY (FOR 21 DAYS)
     Route: 048
     Dates: start: 20230526
  7. INLYTA [Suspect]
     Active Substance: AXITINIB
     Dosage: 4 MG, 2X/DAY
     Route: 048
     Dates: start: 20230707
  8. INLYTA [Suspect]
     Active Substance: AXITINIB
     Dosage: 8 MG, 2X/DAY (1 TAB OF 5 MG W/3 TABS OF 1 MG)
     Route: 048
  9. INLYTA [Suspect]
     Active Substance: AXITINIB
     Dosage: 7 MG, 2X/DAY (TAKE 2 TABS OF 1MG + 1 TAB OF 5MG, FOR 7MG TOTAL 2X/DAY FOR 21 DAYS)
     Route: 048
     Dates: start: 20230727
  10. INLYTA [Suspect]
     Active Substance: AXITINIB
     Dosage: 7 MG, 2X/DAY (TAKE 2 TABS OF 1MG + 1 TAB OF 5MG, FOR 7MG TOTAL 2X/DAY FOR 21 DAYS)
     Route: 048
     Dates: start: 20230907
  11. INLYTA [Suspect]
     Active Substance: AXITINIB
     Dosage: 7 MG, 2X/DAY (TAKE 2 TABS OF 1MG + 1 TAB OF 5MG, FOR 7MG TOTAL 2X/DAY FOR 21 DAYS)
     Route: 048
     Dates: start: 20240202
  12. INLYTA [Suspect]
     Active Substance: AXITINIB
     Dosage: 5 MG, 2X/DAY ( FOR 21 DAYS)
     Route: 048
     Dates: start: 20240223
  13. INLYTA [Suspect]
     Active Substance: AXITINIB
     Dosage: 5 MG, 2X/DAY ( FOR 21 DAYS)
     Route: 048
     Dates: start: 20240315
  14. INLYTA [Suspect]
     Active Substance: AXITINIB
     Dosage: 5 MG, 2X/DAY (FOR 21 DAYS)
     Route: 048
     Dates: start: 20240705
  15. INLYTA [Suspect]
     Active Substance: AXITINIB
     Dosage: 5 MG, 2X/DAY (FOR 21 DAYS)
     Route: 048
     Dates: start: 20240815
  16. LEVOTHYROXINE SODIUM [Concomitant]
     Active Substance: LEVOTHYROXINE SODIUM
     Dosage: 50 MG, DAILY
     Route: 048

REACTIONS (8)
  - Arteriosclerosis coronary artery [Unknown]
  - Weight decreased [Not Recovered/Not Resolved]
  - Pulmonary mass [Unknown]
  - Hepatic steatosis [Unknown]
  - Hepatic lesion [Unknown]
  - Arteriosclerosis [Unknown]
  - Diverticulum intestinal [Unknown]
  - Weight increased [Unknown]

NARRATIVE: CASE EVENT DATE: 20220101
